FAERS Safety Report 5966340-X (Version None)
Quarter: 2008Q4

REPORT INFORMATION
  Report Type: 
  Country: None (occurrence: None)
  Receive Date: 20081125
  Receipt Date: 20081029
  Transmission Date: 20090506
  Serious: No
  Sender: FDA-Public Use
  Company Number: US-AMGEN-KDL316308

PATIENT
  Sex: Female

DRUGS (1)
  1. ENBREL [Suspect]
     Indication: JUVENILE ARTHRITIS
     Route: 058
     Dates: start: 20080923

REACTIONS (7)
  - ABDOMINAL PAIN UPPER [None]
  - BLISTER [None]
  - FATIGUE [None]
  - HYPERSENSITIVITY [None]
  - LIP BLISTER [None]
  - OROPHARYNGEAL PAIN [None]
  - SKIN EXFOLIATION [None]
